FAERS Safety Report 4490470-5 (Version None)
Quarter: 2004Q4

REPORT INFORMATION
  Report Type: 
  Country: None (occurrence: None)
  Receive Date: 20041028
  Receipt Date: 20041018
  Transmission Date: 20050328
  Serious: Yes (Life-Threatening, Hospitalization)
  Sender: FDA-Public Use
  Company Number: 2004232891JP

PATIENT
  Age: 69 Year
  Sex: Female
  Weight: 40 kg

DRUGS (6)
  1. CABERGOLINE [Suspect]
     Indication: PARKINSON'S DISEASE
     Dosage: SEE IMAGE
     Route: 048
     Dates: start: 20040622, end: 20040826
  2. CABERGOLINE [Suspect]
     Indication: PARKINSON'S DISEASE
     Dosage: SEE IMAGE
     Route: 048
     Dates: start: 20020501
  3. EC DOPARL (BENSERAZIDE HYDROCHLORIDE) TABLET [Suspect]
     Indication: PARKINSON'S DISEASE
     Dosage: ORAL
     Route: 048
     Dates: start: 20030701
  4. SELEGILINE HYDROCHLORIDE [Suspect]
     Indication: PARKINSON'S DISEASE
     Dosage: 2.5 MG/DAY, ORAL
     Route: 048
     Dates: start: 20030701, end: 20040826
  5. DOPS (DROXIDOPA) [Concomitant]
  6. LANDSEN [Concomitant]

REACTIONS (16)
  - BLOOD PRESSURE SYSTOLIC DECREASED [None]
  - BRADYKINESIA [None]
  - CYANOSIS [None]
  - DYSKINESIA [None]
  - DYSPNOEA [None]
  - FEELING ABNORMAL [None]
  - INJURY ASPHYXIATION [None]
  - INSPIRATORY CAPACITY DECREASED [None]
  - MOUTH BREATHING [None]
  - RESPIRATORY DISORDER [None]
  - SHOCK [None]
  - SPEECH DISORDER [None]
  - STRIDOR [None]
  - TACHYPNOEA [None]
  - TREMOR [None]
  - VOCAL CORD PARALYSIS [None]
